FAERS Safety Report 9778589 (Version 1)
Quarter: 2013Q4

REPORT INFORMATION
  Report Type: Spontaneous
  Country: NO (occurrence: NO)
  Receive Date: 20131223
  Receipt Date: 20131223
  Transmission Date: 20140711
  Serious: Yes (Other)
  Sender: FDA-Public Use
  Company Number: NO-MYLANLABS-2013S1027912

PATIENT
  Age: 71 Year
  Sex: Male

DRUGS (1)
  1. PIROXICAM [Suspect]
     Indication: SPINAL PAIN

REACTIONS (4)
  - Vomiting [Recovering/Resolving]
  - Haematemesis [Recovering/Resolving]
  - Oesophageal ulcer [Recovering/Resolving]
  - Product packaging issue [Unknown]
